FAERS Safety Report 7596844-8 (Version None)
Quarter: 2011Q3

REPORT INFORMATION
  Report Type: 
  Country: None (occurrence: None)
  Receive Date: 20110708
  Receipt Date: 20110624
  Transmission Date: 20111222
  Serious: Yes (Hospitalization)
  Sender: FDA-Public Use
  Company Number: GB-MYLANLABS-2009S1009749

PATIENT
  Age: 85 Year
  Sex: Male

DRUGS (2)
  1. ASPIRIN [Concomitant]
     Indication: PRODUCT USED FOR UNKNOWN INDICATION
  2. AMIODARONE HCL [Suspect]
     Indication: ATRIAL FIBRILLATION
     Route: 048

REACTIONS (6)
  - NEUROPATHIC ARTHROPATHY [None]
  - FOOT DEFORMITY [None]
  - SKIN ULCER [None]
  - JOINT DISLOCATION [None]
  - PARAESTHESIA [None]
  - NEUROPATHY PERIPHERAL [None]
